FAERS Safety Report 9699348 (Version 2)
Quarter: 2013Q4

REPORT INFORMATION
  Report Type: Spontaneous
  Country: US (occurrence: US)
  Receive Date: 20131120
  Receipt Date: 20131120
  Transmission Date: 20140711
  Serious: No
  Sender: FDA-Public Use
  Company Number: US-GILEAD-2008-0015656

PATIENT
  Age: 63 Year
  Sex: Female

DRUGS (13)
  1. LETAIRIS [Suspect]
     Indication: PULMONARY ARTERIAL HYPERTENSION
     Route: 048
     Dates: start: 20080213
  2. TOPROL XL [Concomitant]
     Indication: HYPERTENSION
     Route: 048
  3. COUMADIN [Concomitant]
     Indication: PULMONARY ARTERIAL HYPERTENSION
     Route: 048
  4. LEVOTHROID [Concomitant]
     Indication: HYPOTHYROIDISM
     Route: 048
  5. LISINOPRIL [Concomitant]
     Indication: HYPERTENSION
     Route: 048
  6. LASIX [Concomitant]
     Indication: PULMONARY ARTERIAL HYPERTENSION
     Route: 048
  7. LASIX [Concomitant]
     Indication: HYPERTENSION
  8. ZOLOFT [Concomitant]
     Route: 048
  9. VALIUM [Concomitant]
     Route: 048
  10. MECLIZINE [Concomitant]
     Route: 048
  11. GABAPENTIN [Concomitant]
     Route: 048
  12. LIPITOR [Concomitant]
     Route: 048
  13. K-DUR [Concomitant]
     Route: 048

REACTIONS (2)
  - Headache [Recovered/Resolved]
  - Oedema peripheral [Not Recovered/Not Resolved]
